FAERS Safety Report 8609277-X (Version None)
Quarter: 2012Q3

REPORT INFORMATION
  Report Type: 
  Country: None (occurrence: None)
  Receive Date: 20120821
  Receipt Date: 20120813
  Transmission Date: 20120928
  Serious: Yes (Other)
  Sender: FDA-Public Use
  Company Number: PHFR2012IE003562

PATIENT
  Sex: Male
  Weight: 74 kg

DRUGS (8)
  1. DIAZEPAM [Concomitant]
     Indication: ANXIETY
     Dosage: 2 MG, DAILY
     Route: 048
     Dates: start: 20110624
  2. FERROUS FUMARATE [Concomitant]
     Indication: HAEMOGLOBIN DECREASED
     Dosage: 200 MG, DAILY
     Route: 048
     Dates: start: 20120606
  3. OMEPRAZOLE [Concomitant]
     Dosage: 40 MG, UNK
     Route: 048
     Dates: start: 20120619
  4. ATORVASTATIN [Concomitant]
     Indication: LIPIDS INCREASED
     Dosage: 10 MG, DAILY
     Route: 048
     Dates: start: 20090619
  5. VALPROATE SODIUM [Concomitant]
     Indication: AFFECTIVE DISORDER
     Dosage: 1000 MG, DAILY
     Route: 048
     Dates: start: 20100205
  6. FEXOFENADINE [Concomitant]
     Indication: FUNGAL INFECTION
     Dosage: 180 MG, DAILY
     Route: 048
     Dates: start: 20120720
  7. POLYETHYLENE GLYCOL [Concomitant]
     Indication: CONSTIPATION
     Dosage: 1 SACHET
     Route: 048
     Dates: start: 20110311
  8. CLOZARIL [Suspect]
     Route: 048
     Dates: start: 20010701

REACTIONS (6)
  - PYREXIA [None]
  - COUGH [None]
  - MALAISE [None]
  - UPPER RESPIRATORY TRACT INFECTION [None]
  - ORTHOSTATIC HYPOTENSION [None]
  - TYPE 2 DIABETES MELLITUS [None]
